FAERS Safety Report 7298309-X (Version None)
Quarter: 2011Q1

REPORT INFORMATION
  Report Type: 
  Country: None (occurrence: None)
  Receive Date: 20110217
  Receipt Date: 20100406
  Transmission Date: 20110831
  Serious: Yes (Other)
  Sender: FDA-Public Use
  Company Number: US-PFIZER INC-2010043575

PATIENT
  Sex: Male
  Weight: 83.9 kg

DRUGS (4)
  1. ALENDRONIC ACID [Concomitant]
     Indication: OSTEOPENIA
     Dosage: 70 MG, WEEKLY
  2. LEVOTHYROXINE [Concomitant]
     Indication: HYPOTHYROIDISM
     Dosage: 0.025 MG, 1X/DAY
  3. SIMVASTATIN [Concomitant]
     Indication: BLOOD CHOLESTEROL INCREASED
     Dosage: 10 MG, 1X/DAY
     Route: 048
  4. XALATAN [Suspect]
     Indication: GLAUCOMA
     Dosage: 2 GTT, 1X/DAY
     Route: 047

REACTIONS (3)
  - NASOPHARYNGITIS [None]
  - VISION BLURRED [None]
  - SINUS HEADACHE [None]
